FAERS Safety Report 11349654 (Version 1)
Quarter: 2015Q3

REPORT INFORMATION
  Report Type: Report from Study
  Country: US (occurrence: US)
  Receive Date: 20150807
  Receipt Date: 20150807
  Transmission Date: 20151125
  Serious: Yes (Other)
  Sender: FDA-Public Use
  Company Number: US-AMGEN-USASL2015079189

PATIENT
  Age: 40 Year
  Sex: Male

DRUGS (4)
  1. LORATADINE. [Concomitant]
     Active Substance: LORATADINE
     Dosage: UNK
  2. ENBREL [Suspect]
     Active Substance: ETANERCEPT
     Indication: RHEUMATOID ARTHRITIS
     Dosage: 50 MG, QWK
     Route: 065
     Dates: start: 2014, end: 201503
  3. ZADITOR                            /00495201/ [Concomitant]
     Dosage: UNK
  4. NASONEX [Concomitant]
     Active Substance: MOMETASONE FUROATE
     Dosage: UNK

REACTIONS (1)
  - Lupus-like syndrome [Unknown]
